FAERS Safety Report 10886066 (Version 6)
Quarter: 2015Q3

REPORT INFORMATION
  Report Type: Spontaneous
  Country: US (occurrence: US)
  Receive Date: 20150304
  Receipt Date: 20150707
  Transmission Date: 20151125
  Serious: Yes (Hospitalization, Disabling, Other)
  Sender: FDA-Public Use
  Company Number: US-ELI_LILLY_AND_COMPANY-US201502007310

PATIENT
  Sex: Female

DRUGS (21)
  1. OXCARBAZEPIN [Concomitant]
     Active Substance: OXCARBAZEPINE
  2. ACETAMINOPHEN. [Concomitant]
     Active Substance: ACETAMINOPHEN
  3. CYMBALTA [Suspect]
     Active Substance: DULOXETINE HYDROCHLORIDE
     Dosage: 60 MG, QD
     Route: 048
     Dates: start: 201101
  4. CYCLOBENZAPRINE [Concomitant]
     Active Substance: CYCLOBENZAPRINE
  5. TRAMADOL. [Concomitant]
     Active Substance: TRAMADOL
  6. LAMOTRIGINE. [Concomitant]
     Active Substance: LAMOTRIGINE
  7. CYMBALTA [Suspect]
     Active Substance: DULOXETINE HYDROCHLORIDE
     Indication: FIBROMYALGIA
     Dosage: 60 MG, UNK
     Route: 065
     Dates: start: 201010
  8. GABAPENTIN. [Concomitant]
     Active Substance: GABAPENTIN
     Dosage: 3600 MG, UNK
  9. PROME                              /00033002/ [Concomitant]
  10. GABAPENTIN. [Concomitant]
     Active Substance: GABAPENTIN
     Indication: PAIN
     Dosage: 600 MG, EACH EVENING
  11. TRAZODONE [Concomitant]
     Active Substance: TRAZODONE HYDROCHLORIDE
  12. ATORVASTATIN [Concomitant]
     Active Substance: ATORVASTATIN
  13. VITAMIN D3 [Concomitant]
     Active Substance: CHOLECALCIFEROL
  14. LYRICA [Concomitant]
     Active Substance: PREGABALIN
     Dosage: UNK
     Dates: end: 20150412
  15. PILOCARPINE. [Concomitant]
     Active Substance: PILOCARPINE
  16. CYMBALTA [Suspect]
     Active Substance: DULOXETINE HYDROCHLORIDE
     Dosage: 90 MG, QD
     Route: 048
  17. CYMBALTA [Suspect]
     Active Substance: DULOXETINE HYDROCHLORIDE
     Dosage: 30 MG, QD
     Route: 065
     Dates: start: 20120512
  18. SYNTHROID [Concomitant]
     Active Substance: LEVOTHYROXINE SODIUM
  19. CYMBALTA [Suspect]
     Active Substance: DULOXETINE HYDROCHLORIDE
     Dosage: 120 MG, QD
     Route: 065
     Dates: start: 20101206
  20. OMEPRAZOLE. [Concomitant]
     Active Substance: OMEPRAZOLE
  21. DICLOFENAC SODIUM. [Concomitant]
     Active Substance: DICLOFENAC SODIUM

REACTIONS (14)
  - Drug withdrawal syndrome [Unknown]
  - Reversible cerebral vasoconstriction syndrome [Recovering/Resolving]
  - Visual field defect [Not Recovered/Not Resolved]
  - Hallucination [Recovered/Resolved]
  - Anxiety [Recovered/Resolved]
  - Weight increased [Unknown]
  - Cerebral infarction [Recovered/Resolved with Sequelae]
  - Hemianopia [Not Recovered/Not Resolved]
  - Hyperhidrosis [Unknown]
  - Blindness [Recovered/Resolved with Sequelae]
  - Subarachnoid haemorrhage [Recovering/Resolving]
  - Myopia [Not Recovered/Not Resolved]
  - Cognitive disorder [Not Recovered/Not Resolved]
  - Panic reaction [Unknown]

NARRATIVE: CASE EVENT DATE: 2013
